FAERS Safety Report 9385943 (Version 1)
Quarter: 2013Q3

REPORT INFORMATION
  Report Type: Spontaneous
  Country: FR (occurrence: FR)
  Receive Date: 20130705
  Receipt Date: 20130705
  Transmission Date: 20140515
  Serious: Yes (Death)
  Sender: FDA-Public Use
  Company Number: FR-SANOFI-AVENTIS-2013SA065962

PATIENT
  Age: 81 Year
  Sex: Male

DRUGS (15)
  1. RIFADINE [Suspect]
     Indication: PRODUCT USED FOR UNKNOWN INDICATION
     Route: 065
     Dates: start: 20130531, end: 20130605
  2. VANCOMYCIN [Suspect]
     Indication: ENDOCARDITIS
     Route: 042
     Dates: start: 20130530, end: 20130605
  3. GENTAMICIN [Suspect]
     Indication: ENDOCARDITIS
     Route: 042
     Dates: start: 20130530, end: 20130605
  4. EUPANTOL [Suspect]
     Indication: PRODUCT USED FOR UNKNOWN INDICATION
     Route: 048
     Dates: start: 20130525, end: 20130615
  5. KARDEGIC [Concomitant]
  6. SPIRIVA [Concomitant]
  7. LASILIX [Concomitant]
  8. KALEORID [Concomitant]
  9. COVERSYL [Concomitant]
  10. NEBILOX [Concomitant]
  11. TOPALGIC [Concomitant]
  12. DAFALGAN [Concomitant]
  13. PARIET [Concomitant]
  14. LOVENOX [Concomitant]
     Dates: start: 20130527
  15. ZYLORIC [Concomitant]
     Dates: start: 20130528

REACTIONS (1)
  - Nephropathy toxic [Fatal]
